FAERS Safety Report 6420984-X (Version None)
Quarter: 2009Q4

REPORT INFORMATION
  Report Type: 
  Country: None (occurrence: None)
  Receive Date: 20091030
  Receipt Date: 20091022
  Transmission Date: 20100525
  Serious: No
  Sender: FDA-Public Use
  Company Number: AU-ASTRAZENECA-2009SE22513

PATIENT
  Age: 0 Day
  Sex: Male

DRUGS (2)
  1. SEROQUEL [Suspect]
     Route: 064
  2. FOLATE [Concomitant]

REACTIONS (3)
  - DRUG WITHDRAWAL SYNDROME [None]
  - JAUNDICE [None]
  - POLYCYTHAEMIA [None]
